FAERS Safety Report 24081797 (Version 4)
Quarter: 2025Q1

REPORT INFORMATION
  Report Type: Spontaneous
  Country: JP (occurrence: JP)
  Receive Date: 20240712
  Receipt Date: 20250313
  Transmission Date: 20250408
  Serious: Yes (Hospitalization, Other)
  Sender: ROCHE
  Company Number: JP-CHUGAI-2024022654AA

PATIENT
  Age: 79 Year
  Sex: Male

DRUGS (8)
  1. AVASTIN [Suspect]
     Active Substance: BEVACIZUMAB
     Indication: Rectosigmoid cancer
     Route: 042
  2. XELODA [Suspect]
     Active Substance: CAPECITABINE
     Indication: Rectal cancer
     Route: 050
  3. OXALIPLATIN [Suspect]
     Active Substance: OXALIPLATIN
     Indication: Rectal cancer
     Route: 042
  4. FEBUXOSTAT [Concomitant]
     Active Substance: FEBUXOSTAT
  5. PRAVASTATIN SODIUM [Concomitant]
     Active Substance: PRAVASTATIN SODIUM
  6. AMLODIPINE BESYLATE [Concomitant]
     Active Substance: AMLODIPINE BESYLATE
  7. LOSARTAN POTASSIUM [Concomitant]
     Active Substance: LOSARTAN POTASSIUM
  8. HERBALS [Concomitant]
     Active Substance: HERBALS

REACTIONS (7)
  - Femoral neck fracture [Unknown]
  - Anastomotic leak [Unknown]
  - Urinary tract infection [Unknown]
  - Bacteraemia [Unknown]
  - Hypocoagulable state [Unknown]
  - Malnutrition [Unknown]
  - Anaemia [Unknown]
